FAERS Safety Report 22349449 (Version 2)
Quarter: 2023Q4

REPORT INFORMATION
  Report Type: Spontaneous
  Country: US (occurrence: US)
  Receive Date: 20230522
  Receipt Date: 20231012
  Transmission Date: 20240109
  Serious: No
  Sender: FDA-Public Use
  Company Number: US-ELI_LILLY_AND_COMPANY-US202305011466

PATIENT
  Age: 61 Year
  Weight: 102.04 kg

DRUGS (7)
  1. TALTZ [Suspect]
     Active Substance: IXEKIZUMAB
     Indication: Psoriatic arthropathy
     Dosage: UNK UNK, UNKNOWN
     Route: 065
     Dates: start: 20230413, end: 20230520
  2. HUMIRA [Suspect]
     Active Substance: ADALIMUMAB
     Indication: Product used for unknown indication
     Dosage: UNK, UNKNOWN
     Route: 065
  3. PREDNISONE [Concomitant]
     Active Substance: PREDNISONE
     Indication: Product used for unknown indication
     Dosage: 5 MG
     Route: 048
  4. OTEZLA [Concomitant]
     Active Substance: APREMILAST
     Indication: Product used for unknown indication
     Dosage: 30 MG, BID
     Route: 048
  5. SIMPONI [Concomitant]
     Active Substance: GOLIMUMAB
     Indication: Product used for unknown indication
     Dosage: 2 MG/KG, SINGLE
     Route: 042
  6. SIMPONI [Concomitant]
     Active Substance: GOLIMUMAB
     Dosage: 2 MG/KG, OTHER (EVERY FOUR WEEKS)
     Route: 042
  7. SIMPONI [Concomitant]
     Active Substance: GOLIMUMAB
     Dosage: MG/KG, OTHER (EVERY EIGHT WEEKS)
     Route: 042

REACTIONS (3)
  - Injection site vesicles [Recovered/Resolved]
  - Psoriatic arthropathy [Unknown]
  - Injection site pruritus [Recovered/Resolved]

NARRATIVE: CASE EVENT DATE: 20230517
